FAERS Safety Report 5261622-1 (Version None)
Quarter: 2007Q1

REPORT INFORMATION
  Report Type: 
  Country: None (occurrence: None)
  Receive Date: 20061218
  Receipt Date: 20060117
  Transmission Date: 20070707
  Serious: No
  Sender: FDA-Public Use
  Company Number: US200607003372

PATIENT
  Sex: Male

DRUGS (2)
  1. CIALIS [Suspect]
     Indication: SEXUAL DYSFUNCTION
  2. CLONAZEPAM [Concomitant]

REACTIONS (5)
  - CRYING [None]
  - DISTURBANCE IN ATTENTION [None]
  - EMOTIONAL DISORDER [None]
  - FATIGUE [None]
  - IRRITABILITY [None]
